FAERS Safety Report 20907943 (Version 2)
Quarter: 2022Q2

REPORT INFORMATION
  Report Type: Spontaneous
  Country: US (occurrence: US)
  Receive Date: 20220602
  Receipt Date: 20220602
  Transmission Date: 20220720
  Serious: No
  Sender: FDA-Public Use
  Company Number: US-JUBILANT PHARMA LTD-2022US000113

PATIENT

DRUGS (1)
  1. RUBY-FILL [Suspect]
     Active Substance: RUBIDIUM CHLORIDE RB-82
     Indication: Product used for unknown indication
     Dosage: UNK,UNK
     Dates: start: 20220307, end: 20220307

REACTIONS (2)
  - Underdose [Unknown]
  - Drug ineffective [Unknown]
